FAERS Safety Report 4911782-4 (Version None)
Quarter: 2006Q1

REPORT INFORMATION
  Report Type: 
  Country: None (occurrence: None)
  Receive Date: 20060213
  Receipt Date: 20060213
  Transmission Date: 20060701
  Serious: Yes (Hospitalization)
  Sender: FDA-Public Use
  Company Number: None

PATIENT
  Age: 30 Year
  Sex: Male
  Weight: 80.1 kg

DRUGS (1)
  1. PEG-INTRON 120 MG SCHERING [Suspect]
     Indication: HEPATITIS C VIRUS
     Dosage: 120 MCG   WEEKLY   SQ
     Route: 058
     Dates: start: 20060203, end: 20060203

REACTIONS (12)
  - BLOOD PRESSURE INCREASED [None]
  - CHEST PAIN [None]
  - CHILLS [None]
  - DYSPNOEA [None]
  - FATIGUE [None]
  - HEART RATE INCREASED [None]
  - NAUSEA [None]
  - NIGHT SWEATS [None]
  - PALPITATIONS [None]
  - PHOTOPHOBIA [None]
  - PYREXIA [None]
  - TACHYCARDIA [None]
